FAERS Safety Report 19180190 (Version 2)
Quarter: 2021Q2

REPORT INFORMATION
  Report Type: Spontaneous
  Country: US (occurrence: US)
  Receive Date: 20210426
  Receipt Date: 20210615
  Transmission Date: 20210717
  Serious: No
  Sender: FDA-Public Use
  Company Number: US-GLAXOSMITHKLINE-US2021AMR087860

PATIENT
  Sex: Female

DRUGS (1)
  1. BENLYSTA [Suspect]
     Active Substance: BELIMUMAB
     Indication: PRODUCT USED FOR UNKNOWN INDICATION
     Dosage: 200 MG/ML
     Dates: start: 202010

REACTIONS (5)
  - Wrong technique in product usage process [Unknown]
  - Product dose omission issue [Unknown]
  - Product complaint [Unknown]
  - Injection site pain [Unknown]
  - Product storage error [Unknown]
